FAERS Safety Report 9925201 (Version 2)
Quarter: 2014Q1

REPORT INFORMATION
  Report Type: Spontaneous
  Country: US (occurrence: None)
  Receive Date: 20140224
  Receipt Date: 20140325
  Transmission Date: 20141002
  Serious: Yes (Hospitalization)
  Sender: FDA-Public Use
  Company Number: C14-006 AE

PATIENT
  Age: 11 Month
  Sex: Female
  Weight: 9.3 kg

DRUGS (1)
  1. FIRST LANSOPRAZOLE RX [Suspect]
     Indication: GASTROOESOPHAGEAL REFLUX DISEASE
     Dosage: 2.5ML ORALLY DAILY
     Route: 048
     Dates: start: 20140131

REACTIONS (3)
  - Vomiting [None]
  - Dehydration [None]
  - Reaction to drug excipients [None]
